FAERS Safety Report 10854981 (Version 1)
Quarter: 2015Q1

REPORT INFORMATION
  Report Type: Spontaneous
  Country: US (occurrence: None)
  Receive Date: 20150218
  Receipt Date: 20150218
  Transmission Date: 20150721
  Serious: Yes (Disabling, Other)
  Sender: FDA-Public Use
  Company Number: None

PATIENT
  Age: 33 Year
  Sex: Female
  Weight: 63.5 kg

DRUGS (2)
  1. COMPAZINE [Suspect]
     Active Substance: PROCHLORPERAZINE MALEATE
     Indication: PRODUCT USED FOR UNKNOWN INDICATION
     Dosage: ONE DOSE ANTINAUSEA ONCE THIS VISIT INTO A VEIN
     Route: 042
  2. IV APPARATUS [Concomitant]

REACTIONS (3)
  - Movement disorder [None]
  - Hypersensitivity [None]
  - Respiratory arrest [None]

NARRATIVE: CASE EVENT DATE: 20130416
